FAERS Safety Report 24455252 (Version 2)
Quarter: 2024Q4

REPORT INFORMATION
  Report Type: Report from Study
  Country: US (occurrence: US)
  Receive Date: 20241017
  Receipt Date: 20241018
  Transmission Date: 20250115
  Serious: No
  Sender: ROCHE
  Company Number: US-ROCHE-3487078

PATIENT
  Age: 70 Year
  Sex: Male
  Weight: 108.86 kg

DRUGS (27)
  1. RITUXAN [Suspect]
     Active Substance: RITUXIMAB
     Indication: Optic neuropathy
     Dosage: 2 INFUSIONS 2 WEEKS APART EVERY 6 MONTHS OVER 5 HOURS AND THE ANTICIPATED DATE OF TREATMENT 19/OCT/2
     Route: 042
     Dates: start: 20231229
  2. PREDNISONE [Suspect]
     Active Substance: PREDNISONE
     Indication: Optic neuropathy
     Dosage: 15MG IN THE MORNING AND 10MG AT NIGHT
     Route: 048
     Dates: start: 20240103
  3. PREDNISONE [Suspect]
     Active Substance: PREDNISONE
     Route: 048
     Dates: start: 202101, end: 20240103
  4. METFORMIN [Concomitant]
     Active Substance: METFORMIN HYDROCHLORIDE
     Indication: Type 2 diabetes mellitus
     Route: 048
  5. FARXIGA [Concomitant]
     Active Substance: DAPAGLIFLOZIN PROPANEDIOL
     Indication: Type 2 diabetes mellitus
     Route: 048
     Dates: start: 2022
  6. BLOOD PRESSURE MEDICATION (UNK INGREDIENTS) [Concomitant]
     Indication: Hypertension
  7. ZYLOPRIM [Concomitant]
     Active Substance: ALLOPURINOL
     Route: 048
  8. NORVASC [Concomitant]
     Active Substance: AMLODIPINE BESYLATE
     Route: 048
  9. BAYER ASPIRIN [Concomitant]
     Active Substance: ASPIRIN
     Route: 048
  10. LIPITOR [Concomitant]
     Active Substance: ATORVASTATIN CALCIUM
     Route: 048
  11. ALPHAGAN P [Concomitant]
     Active Substance: BRIMONIDINE TARTRATE
  12. CATAPRES [Concomitant]
     Active Substance: CLONIDINE HYDROCHLORIDE
     Route: 048
  13. TRULICITY [Concomitant]
     Active Substance: DULAGLUTIDE
     Route: 058
  14. LUNESTA [Concomitant]
     Active Substance: ESZOPICLONE
     Route: 048
  15. PEPCID [Concomitant]
     Active Substance: FAMOTIDINE
     Route: 048
  16. FARXIGA [Concomitant]
     Active Substance: DAPAGLIFLOZIN PROPANEDIOL
     Route: 048
  17. GLUCOTROL XL [Concomitant]
     Active Substance: GLIPIZIDE
     Route: 048
  18. HUMALOG KWIKPEN [Concomitant]
     Active Substance: INSULIN LISPRO
  19. XYZAL [Concomitant]
     Active Substance: LEVOCETIRIZINE DIHYDROCHLORIDE
     Route: 048
  20. SYNTHROID [Concomitant]
     Active Substance: LEVOTHYROXINE SODIUM
     Route: 048
  21. GLUCOPHAGE XR [Concomitant]
     Active Substance: METFORMIN HYDROCHLORIDE
     Route: 048
  22. LOPRESSOR [Concomitant]
     Active Substance: METOPROLOL TARTRATE
     Route: 048
  23. SINGULAIR [Concomitant]
     Active Substance: MONTELUKAST SODIUM
     Route: 048
  24. CONDYLOX [Concomitant]
     Active Substance: PODOFILOX
  25. MICRO K [Concomitant]
     Dosage: 10 MEQ
     Route: 048
  26. DELTASONE [Concomitant]
     Active Substance: PREDNISONE
     Route: 048
  27. TRESIBA [Concomitant]
     Active Substance: INSULIN DEGLUDEC
     Dosage: 80 UNITS
     Route: 058

REACTIONS (4)
  - Intentional product use issue [Unknown]
  - Muscular weakness [Unknown]
  - Dyspnoea [Not Recovered/Not Resolved]
  - Blood glucose increased [Unknown]

NARRATIVE: CASE EVENT DATE: 20231201
